FAERS Safety Report 4817636-6 (Version None)
Quarter: 2005Q4

REPORT INFORMATION
  Report Type: 
  Country: None (occurrence: None)
  Receive Date: 20051102
  Receipt Date: 20050719
  Transmission Date: 20060501
  Serious: Yes (Other)
  Sender: FDA-Public Use
  Company Number: PHEH2005US08022

PATIENT
  Age: 46 Year
  Sex: Female

DRUGS (2)
  1. ZELNORM [Suspect]
     Dosage: UNK
  2. PRENATAL VITAMINS [Concomitant]

REACTIONS (4)
  - ABDOMINAL DISTENSION [None]
  - ABDOMINAL PAIN [None]
  - CONSTIPATION [None]
  - GALLBLADDER OPERATION [None]
